FAERS Safety Report 8616401-1 (Version None)
Quarter: 2012Q3

REPORT INFORMATION
  Report Type: 
  Country: None (occurrence: None)
  Receive Date: 20120823
  Receipt Date: 20120810
  Transmission Date: 20120928
  Serious: Yes (Hospitalization)
  Sender: FDA-Public Use
  Company Number: US-JNJFOC-20120412190

PATIENT
  Age: 39 Year
  Sex: Male
  Weight: 79 kg

DRUGS (4)
  1. LORTAB [Concomitant]
  2. CITALOPRAM HYDROBROMIDE [Concomitant]
  3. TESTOSTERONE CYPIONATE [Concomitant]
     Route: 061
  4. TYLENOL PM [Suspect]
     Indication: PRODUCT USED FOR UNKNOWN INDICATION
     Dosage: 70-100 TAKEN
     Route: 048
     Dates: start: 20120417, end: 20120417

REACTIONS (6)
  - TRANSAMINASES INCREASED [None]
  - PROTHROMBIN TIME PROLONGED [None]
  - INTENTIONAL OVERDOSE [None]
  - ABDOMINAL PAIN UPPER [None]
  - VOMITING [None]
  - INTENTIONAL SELF-INJURY [None]
